FAERS Safety Report 6903218-9 (Version None)
Quarter: 2010Q3

REPORT INFORMATION
  Report Type: 
  Country: None (occurrence: None)
  Receive Date: 20100803
  Receipt Date: 20080616
  Transmission Date: 20110219
  Serious: No
  Sender: FDA-Public Use
  Company Number: US-PFIZER INC-2008042577

PATIENT
  Sex: Male
  Weight: 72.6 kg

DRUGS (2)
  1. LYRICA [Suspect]
     Indication: PAIN
     Dates: start: 20080501
  2. ACETYLSALICYLIC ACID SRT [Concomitant]

REACTIONS (2)
  - ERYTHEMA [None]
  - EUPHORIC MOOD [None]
